FAERS Safety Report 20645108 (Version 1)
Quarter: 2022Q1

REPORT INFORMATION
  Report Type: Spontaneous
  Country: US (occurrence: US)
  Receive Date: 20220328
  Receipt Date: 20220328
  Transmission Date: 20220423
  Serious: No
  Sender: FDA-Public Use
  Company Number: US-SA-SAC20220322001720

PATIENT
  Sex: Female

DRUGS (9)
  1. DUPIXENT [Suspect]
     Active Substance: DUPILUMAB
     Indication: Dermatitis atopic
     Dosage: 300 MG, QOW
     Route: 058
     Dates: start: 20171117
  2. CALCIUM [Concomitant]
     Active Substance: CALCIUM
  3. LEVALBUTEROL [Concomitant]
     Active Substance: LEVALBUTEROL
  4. METHYLPREDNISOLONE [Concomitant]
     Active Substance: METHYLPREDNISOLONE
  5. PREDNISONE [Concomitant]
     Active Substance: PREDNISONE
  6. VYVANSE [Concomitant]
     Active Substance: LISDEXAMFETAMINE DIMESYLATE
  7. VYVANSE [Concomitant]
     Active Substance: LISDEXAMFETAMINE DIMESYLATE
  8. PROBIOTICS NOS [Concomitant]
     Active Substance: PROBIOTICS NOS
  9. VYVANSE [Concomitant]
     Active Substance: LISDEXAMFETAMINE DIMESYLATE

REACTIONS (3)
  - Dermatitis atopic [Not Recovered/Not Resolved]
  - Rash [Not Recovered/Not Resolved]
  - Discomfort [Not Recovered/Not Resolved]
